FAERS Safety Report 8817632 (Version 1)
Quarter: 2012Q4

REPORT INFORMATION
  Report Type: 
  Country: US (occurrence: US)
  Receive Date: 20121001
  Receipt Date: 20121001
  Transmission Date: 20130627
  Serious: No
  Sender: FDA-Public Use
  Company Number: US-TEVA-360269USA

PATIENT
  Age: 64 Year
  Sex: Female
  Weight: 74.46 kg

DRUGS (8)
  1. NUVIGIL [Suspect]
     Indication: SLEEP APNOEA SYNDROME
     Dosage: 150 Milligram Daily;
     Route: 048
     Dates: start: 20120805, end: 201209
  2. LAMICTAL [Concomitant]
     Indication: FEELING OF RELAXATION
     Dosage: 200 Milligram Daily;
     Route: 048
  3. CELEXA [Concomitant]
     Indication: DEPRESSION
     Dosage: 40 Milligram Daily;
     Route: 048
  4. CELEXA [Concomitant]
     Indication: ANXIETY
  5. SIMVASTATIN [Concomitant]
     Indication: BLOOD CHOLESTEROL
     Dosage: 40 Milligram Daily;
     Route: 048
  6. PRAMIPEXOLE [Concomitant]
     Indication: RESTLESS LEGS SYNDROME
     Dosage: .25 Milligram Daily;
     Route: 048
     Dates: start: 2010
  7. ATENOLOL [Concomitant]
     Indication: HYPERTENSION
     Dosage: 25 Milligram Daily;
     Route: 048
  8. LASIX [Concomitant]
     Indication: FLUID RETENTION
     Dosage: 20 Milligram Daily;
     Route: 048

REACTIONS (1)
  - Drug effect decreased [Recovered/Resolved]
